FAERS Safety Report 19112222 (Version 1)
Quarter: 2021Q2

REPORT INFORMATION
  Report Type: Spontaneous
  Country: US (occurrence: US)
  Receive Date: 20210409
  Receipt Date: 20210409
  Transmission Date: 20210717
  Serious: Yes (Death)
  Sender: FDA-Public Use
  Company Number: None

PATIENT
  Age: 88 Year
  Sex: Male
  Weight: 69 kg

DRUGS (1)
  1. APIXABAN (APIXABAN 5MG TAB) [Suspect]
     Active Substance: APIXABAN
     Indication: ATRIAL FIBRILLATION
     Route: 048
     Dates: start: 20200512, end: 20210321

REACTIONS (10)
  - Haemorrhage [None]
  - Hyperkalaemia [None]
  - Haemoglobin decreased [None]
  - Ventricular tachycardia [None]
  - Anuria [None]
  - Blood creatinine increased [None]
  - Intra-abdominal haemorrhage [None]
  - Hepatic cirrhosis [None]
  - Dyspnoea [None]
  - Hepatic lesion [None]

NARRATIVE: CASE EVENT DATE: 20210324
